FAERS Safety Report 4565162-4 (Version None)
Quarter: 2005Q1

REPORT INFORMATION
  Report Type: 
  Country: None (occurrence: None)
  Receive Date: 20050127
  Receipt Date: 20050127
  Transmission Date: 20050727
  Serious: No
  Sender: FDA-Public Use
  Company Number: None

PATIENT
  Age: 71 Year
  Sex: Female
  Weight: 87.1 kg

DRUGS (6)
  1. GLYBURIDE [Suspect]
  2. SIMVASTATIN [Concomitant]
  3. GABAPENTIN [Concomitant]
  4. FLUNISOLIDE [Concomitant]
  5. INSULIN HUMAN REGULAR [Concomitant]
  6. NITROGLYCERIN [Concomitant]

REACTIONS (1)
  - HYPOGLYCAEMIA [None]
